FAERS Safety Report 23104059 (Version 1)
Quarter: 2023Q4

REPORT INFORMATION
  Report Type: Report from Study
  Country: US (occurrence: US)
  Receive Date: 20231025
  Receipt Date: 20231025
  Transmission Date: 20240109
  Serious: Yes (Other)
  Sender: FDA-Public Use
  Company Number: US-GILEAD-2023-0642952

PATIENT
  Sex: Male

DRUGS (1)
  1. SOFOSBUVIR\VELPATASVIR [Suspect]
     Active Substance: SOFOSBUVIR\VELPATASVIR
     Indication: Hepatitis C
     Dosage: 1 DOSAGE FORM, QD (400/100MG)
     Route: 048
     Dates: start: 20230821

REACTIONS (4)
  - Hallucination [Not Recovered/Not Resolved]
  - Surgery [Unknown]
  - Paranoia [Not Recovered/Not Resolved]
  - Irritability [Unknown]
